FAERS Safety Report 16307319 (Version 5)
Quarter: 2020Q2

REPORT INFORMATION
  Report Type: Spontaneous
  Country: US (occurrence: US)
  Receive Date: 20190514
  Receipt Date: 20200522
  Transmission Date: 20200713
  Serious: Yes (Other)
  Sender: FDA-Public Use
  Company Number: US-AMGEN-USASP2019070673

PATIENT
  Age: 70 Year
  Sex: Female

DRUGS (6)
  1. PROLIA [Suspect]
     Active Substance: DENOSUMAB
     Dosage: UNK, Q6MO
     Route: 065
     Dates: start: 201810
  2. EVISTA [Concomitant]
     Active Substance: RALOXIFENE HYDROCHLORIDE
     Indication: BREAST DISORDER
     Dosage: UNK
  3. PROLIA [Suspect]
     Active Substance: DENOSUMAB
     Indication: OSTEOPOROSIS POSTMENOPAUSAL
     Dosage: 60 MILLIGRAM, Q6MO
     Route: 065
     Dates: start: 20150107, end: 201609
  4. CALCIUM [Concomitant]
     Active Substance: CALCIUM
  5. VITAMIN D [COLECALCIFEROL] [Concomitant]
     Active Substance: CHOLECALCIFEROL
  6. PREDNISONE. [Concomitant]
     Active Substance: PREDNISONE
     Indication: CROHN^S DISEASE

REACTIONS (3)
  - Precancerous condition [Unknown]
  - Tooth disorder [Unknown]
  - Crohn^s disease [Recovered/Resolved]

NARRATIVE: CASE EVENT DATE: 2016
